FAERS Safety Report 5796011-4 (Version None)
Quarter: 2008Q2

REPORT INFORMATION
  Report Type: 
  Country: None (occurrence: None)
  Receive Date: 20080626
  Receipt Date: 20080617
  Transmission Date: 20081010
  Serious: Yes (Other)
  Sender: FDA-Public Use
  Company Number: 19576

PATIENT
  Sex: Female

DRUGS (4)
  1. LEUCOVORIN CALCIUM [Suspect]
     Indication: COLON CANCER
     Dates: start: 20080421
  2. FLUOROURACIL [Suspect]
     Indication: COLON CANCER
     Dates: start: 20080421
  3. OXALIPLATIN [Suspect]
     Indication: COLON CANCER
     Dates: start: 20080421
  4. ALOXI [Concomitant]

REACTIONS (3)
  - NEUROPATHY PERIPHERAL [None]
  - NEUTROPENIA [None]
  - PLATELET COUNT DECREASED [None]
